FAERS Safety Report 10846333 (Version 1)
Quarter: 2015Q1

REPORT INFORMATION
  Report Type: Spontaneous
  Country: US (occurrence: US)
  Receive Date: 20150220
  Receipt Date: 20150220
  Transmission Date: 20150721
  Serious: Yes (Disabling, Other)
  Sender: FDA-Public Use
  Company Number: US-SA-2015SA020245

PATIENT
  Age: 33 Year
  Sex: Female

DRUGS (3)
  1. LOVENOX [Suspect]
     Active Substance: ENOXAPARIN SODIUM
     Indication: COAGULOPATHY
     Route: 065
     Dates: start: 2005
  2. LOVENOX [Suspect]
     Active Substance: ENOXAPARIN SODIUM
     Indication: COAGULOPATHY
     Route: 065
  3. LOVENOX [Suspect]
     Active Substance: ENOXAPARIN SODIUM
     Indication: COAGULOPATHY
     Route: 065
     Dates: end: 2014

REACTIONS (5)
  - Aphagia [Not Recovered/Not Resolved]
  - Dysphagia [Not Recovered/Not Resolved]
  - Bleeding time prolonged [Unknown]
  - Exposure during pregnancy [Unknown]
  - Colitis ulcerative [Unknown]

NARRATIVE: CASE EVENT DATE: 2008
